FAERS Safety Report 4498320-8 (Version None)
Quarter: 2004Q4

REPORT INFORMATION
  Report Type: 
  Country: None (occurrence: None)
  Receive Date: 20041109
  Receipt Date: 20041109
  Transmission Date: 20050328
  Serious: Yes (Hospitalization)
  Sender: FDA-Public Use
  Company Number: None

PATIENT
  Age: 81 Year
  Sex: Male
  Weight: 122.0176 kg

DRUGS (2)
  1. GEMCITABINE [Suspect]
     Indication: NON-SMALL CELL LUNG CANCER
     Dosage: 1000 MG/M2 IV
     Route: 042
     Dates: start: 20041015
  2. CARBOPLATIN [Suspect]
     Indication: NON-SMALL CELL LUNG CANCER
     Dosage: AUC 5.5 IV
     Route: 042
     Dates: start: 20041015

REACTIONS (6)
  - ANAEMIA [None]
  - ASTHENIA [None]
  - BODY TEMPERATURE INCREASED [None]
  - DYSPNOEA [None]
  - HYPOXIA [None]
  - PNEUMONIA [None]
